FAERS Safety Report 8870336 (Version 2)
Quarter: 2013Q2

REPORT INFORMATION
  Report Type: Spontaneous
  Country: US (occurrence: None)
  Receive Date: 20120426
  Receipt Date: 20120703
  Transmission Date: 20140414
  Serious: Yes (Other)
  Sender: FDA-Public Use
  Company Number: PHEH2012US004541

PATIENT
  Sex: Male
  Weight: 107 kg

DRUGS (1)
  1. GILENYA [Suspect]
     Dosage: OT, ORAL
     Route: 048

REACTIONS (6)
  - Cardiac murmur [None]
  - Weight increased [None]
  - Anxiety [None]
  - Blood iron increased [None]
  - Liver function test abnormal [None]
  - Palpitations [None]
